FAERS Safety Report 13553699 (Version 3)
Quarter: 2017Q3

REPORT INFORMATION
  Report Type: Spontaneous
  Country: US (occurrence: US)
  Receive Date: 20170517
  Receipt Date: 20170704
  Transmission Date: 20171127
  Serious: No
  Sender: FDA-Public Use
  Company Number: US-ASTRAZENECA-2017SE47291

PATIENT
  Age: 23198 Day
  Sex: Female
  Weight: 110.2 kg

DRUGS (5)
  1. BLOOD THINNER/GENERIC STATIN [Concomitant]
     Indication: ANGIOPATHY
     Dosage: 70 OR 80 MG DAILY
     Route: 048
     Dates: start: 201509
  2. METFORMIN [Concomitant]
     Active Substance: METFORMIN HYDROCHLORIDE
     Indication: TYPE 2 DIABETES MELLITUS
     Route: 048
     Dates: start: 1997
  3. HUMULIN R [Concomitant]
     Active Substance: INSULIN HUMAN
     Indication: TYPE 2 DIABETES MELLITUS
     Dosage: HUMULIN R U 500 100 UNITS THREE TIMES A DAY
     Route: 058
     Dates: start: 201703
  4. ASPIRIN. [Concomitant]
     Active Substance: ASPIRIN
     Indication: ANGIOPATHY
     Route: 048
     Dates: start: 201509
  5. BYDUREON [Suspect]
     Active Substance: EXENATIDE
     Indication: TYPE 2 DIABETES MELLITUS
     Route: 058
     Dates: start: 20170127

REACTIONS (4)
  - Injection site haemorrhage [Recovered/Resolved]
  - Device malfunction [Unknown]
  - Circumstance or information capable of leading to medication error [Unknown]
  - Underdose [Unknown]

NARRATIVE: CASE EVENT DATE: 20170127
